FAERS Safety Report 21230052 (Version 2)
Quarter: 2022Q4

REPORT INFORMATION
  Report Type: Spontaneous
  Country: US (occurrence: US)
  Receive Date: 20220818
  Receipt Date: 20221007
  Transmission Date: 20230112
  Serious: No
  Sender: FDA-Public Use
  Company Number: US-ORGANON-O2208USA001200

PATIENT
  Age: 26 Year
  Sex: Female
  Weight: 68.526 kg

DRUGS (1)
  1. NEXPLANON [Suspect]
     Active Substance: ETONOGESTREL
     Indication: Contraception
     Dosage: 1 ROD (68 MILLIGRAM)
     Route: 059
     Dates: start: 20220808, end: 20220808

REACTIONS (1)
  - Pregnancy test positive [Unknown]

NARRATIVE: CASE EVENT DATE: 20220808
